FAERS Safety Report 23878607 (Version 3)
Quarter: 2024Q2

REPORT INFORMATION
  Report Type: Spontaneous
  Country: CA (occurrence: CA)
  Receive Date: 20240521
  Receipt Date: 20240606
  Transmission Date: 20240716
  Serious: Yes (Other)
  Sender: FDA-Public Use
  Company Number: CA-PFIZER INC-202400171681

PATIENT
  Age: 37 Year
  Sex: Female

DRUGS (3)
  1. RUXIENCE [Suspect]
     Active Substance: RITUXIMAB-PVVR
     Indication: Multiple sclerosis
     Dosage: 1000 MG, DAY 1 AND DAY 15
     Route: 042
     Dates: start: 20230526, end: 20230608
  2. RUXIENCE [Suspect]
     Active Substance: RITUXIMAB-PVVR
     Dosage: 1000 MG, THEN DAY 1 Q 6 MONTH X 1 YEAR
     Route: 042
     Dates: start: 20231207
  3. TRANEXAMIC ACID [Concomitant]
     Active Substance: TRANEXAMIC ACID
     Dosage: 1 DF

REACTIONS (9)
  - Primary progressive multiple sclerosis [Not Recovered/Not Resolved]
  - Fall [Unknown]
  - Endometriosis [Unknown]
  - Fatigue [Unknown]
  - Infection [Unknown]
  - COVID-19 [Unknown]
  - Blood iron decreased [Unknown]
  - Drug ineffective for unapproved indication [Unknown]
  - Off label use [Unknown]

NARRATIVE: CASE EVENT DATE: 20230101
